FAERS Safety Report 19065095 (Version 2)
Quarter: 2021Q2

REPORT INFORMATION
  Report Type: Spontaneous
  Country: US (occurrence: US)
  Receive Date: 20210326
  Receipt Date: 20210621
  Transmission Date: 20210717
  Serious: Yes (Other)
  Sender: FDA-Public Use
  Company Number: US-ROCHE-2737004

PATIENT
  Sex: Female

DRUGS (2)
  1. TUKYSA [Suspect]
     Active Substance: TUCATINIB
     Indication: BREAST CANCER FEMALE
     Dosage: ONCE DAILY
     Route: 065
     Dates: start: 20200927
  2. XELODA [Suspect]
     Active Substance: CAPECITABINE
     Indication: PRODUCT USED FOR UNKNOWN INDICATION
     Route: 048
     Dates: start: 20200927

REACTIONS (9)
  - Seizure [Unknown]
  - Lip swelling [Unknown]
  - Abdominal discomfort [Unknown]
  - Burning sensation [Unknown]
  - Lip disorder [Unknown]
  - Localised infection [Unknown]
  - Fall [Unknown]
  - Chapped lips [Unknown]
  - Headache [Unknown]
